FAERS Safety Report 8624270-9 (Version None)
Quarter: 2012Q3

REPORT INFORMATION
  Report Type: 
  Country: None (occurrence: None)
  Receive Date: 20120827
  Receipt Date: 20120816
  Transmission Date: 20120928
  Serious: Yes (Hospitalization)
  Sender: FDA-Public Use
  Company Number: CN-ASTRAZENECA-2012SE61111

PATIENT
  Sex: Male
  Weight: 55.8 kg

DRUGS (7)
  1. AMLODIPINE [Concomitant]
  2. CRESTOR [Suspect]
     Indication: HYPERLIPASAEMIA
     Route: 048
     Dates: start: 20100320, end: 20110605
  3. ACETYLSALICYLIC ACID SRT [Concomitant]
  4. HYDROCHLOROTHIAZIDE [Concomitant]
  5. GLIMEPIRIDE [Concomitant]
  6. BROMOCRIPTINE MESYLATE [Concomitant]
  7. LOSARTAN POTASSIUM [Concomitant]

REACTIONS (2)
  - LUNG ABSCESS [None]
  - PULMONARY TUBERCULOSIS [None]
